FAERS Safety Report 4674046-2 (Version None)
Quarter: 2005Q2

REPORT INFORMATION
  Report Type: 
  Country: None (occurrence: None)
  Receive Date: 20050525
  Receipt Date: 20050513
  Transmission Date: 20051028
  Serious: Yes (Hospitalization)
  Sender: FDA-Public Use
  Company Number: CA-2005-007813

PATIENT
  Sex: Male

DRUGS (8)
  1. BETASERON [Suspect]
     Indication: SECONDARY PROGRESSIVE MULTIPLE SCLEROSIS
     Dosage: 8 MIU, EVERY 2D, SUBCUTANEOUS
     Route: 058
     Dates: start: 19990317
  2. GABAPENTIN [Suspect]
     Indication: MUSCLE SPASMS
  3. BACLOFEN [Concomitant]
  4. ZANAFLEX [Concomitant]
  5. AMITRIPTYLINE HCL [Concomitant]
  6. DIOVAN    NOVARTIS   (VALSARTAN) [Concomitant]
  7. NEXIUM [Concomitant]
  8. EXTRA STRENGTH TYLENOL [Concomitant]

REACTIONS (5)
  - DYSPNOEA [None]
  - MOBILITY DECREASED [None]
  - NAUSEA [None]
  - OEDEMA PERIPHERAL [None]
  - PYREXIA [None]
